FAERS Safety Report 8590702-8 (Version None)
Quarter: 2012Q3

REPORT INFORMATION
  Report Type: 
  Country: None (occurrence: None)
  Receive Date: 20120813
  Receipt Date: 20120801
  Transmission Date: 20120928
  Serious: Yes (Hospitalization, Disabling, Other)
  Sender: FDA-Public Use
  Company Number: US-009507513-1203USA03482

PATIENT

DRUGS (7)
  1. PHENOBARBITAL TAB [Concomitant]
     Indication: CONVULSION
     Dosage: 150 MG, QD
     Dates: start: 19970101
  2. FOSAMAX [Suspect]
     Indication: OSTEOPOROSIS
     Dosage: 5 MG, QD
     Route: 048
     Dates: start: 19971103
  3. FOSAMAX [Suspect]
     Dosage: 70 MG, UNK
     Route: 048
     Dates: start: 20010118, end: 20071001
  4. MIACALCIN [Concomitant]
     Indication: OSTEOPOROSIS
     Dates: start: 20010101, end: 20070101
  5. FOSAMAX [Suspect]
     Dosage: 10 MG, UNK
     Route: 048
     Dates: start: 19980601, end: 20010105
  6. ALENDRONATE SODIUM [Suspect]
     Route: 048
  7. LAMICTAL [Concomitant]
     Indication: CONVULSION
     Dates: start: 20000101

REACTIONS (61)
  - LOW TURNOVER OSTEOPATHY [None]
  - CORONARY ARTERY DISEASE [None]
  - FALL [None]
  - APPENDICECTOMY [None]
  - HYPERHIDROSIS [None]
  - RIB FRACTURE [None]
  - INTENTIONAL DRUG MISUSE [None]
  - TROPONIN I INCREASED [None]
  - DYSPNOEA [None]
  - LICHEN PLANUS [None]
  - CONSTIPATION [None]
  - DIARRHOEA [None]
  - STRESS FRACTURE [None]
  - BUNDLE BRANCH BLOCK LEFT [None]
  - COUGH [None]
  - VAGINAL HAEMORRHAGE [None]
  - ASTHENIA [None]
  - MYOCARDIAL INFARCTION [None]
  - ANAEMIA POSTOPERATIVE [None]
  - PULMONARY EMBOLISM [None]
  - HYPERTENSION [None]
  - HYPOTENSION [None]
  - LUMBAR SPINAL STENOSIS [None]
  - CARDIOMYOPATHY [None]
  - DECREASED APPETITE [None]
  - DRY MOUTH [None]
  - FEMUR FRACTURE [None]
  - ROAD TRAFFIC ACCIDENT [None]
  - DYSPNOEA EXERTIONAL [None]
  - ADVERSE EVENT [None]
  - WEIGHT INCREASED [None]
  - CARDIAC FAILURE CONGESTIVE [None]
  - LETHARGY [None]
  - CATARACT [None]
  - BRADYCARDIA [None]
  - BLOOD CHOLESTEROL INCREASED [None]
  - VERTIGO POSITIONAL [None]
  - BACK DISORDER [None]
  - VISION BLURRED [None]
  - DEPRESSION [None]
  - THROMBOSIS [None]
  - PALLOR [None]
  - DRUG INTOLERANCE [None]
  - ANXIETY [None]
  - EYE DISORDER [None]
  - NAUSEA [None]
  - LUMBAR VERTEBRAL FRACTURE [None]
  - URINARY TRACT INFECTION [None]
  - KYPHOSIS [None]
  - SYNCOPE [None]
  - IRRITABLE BOWEL SYNDROME [None]
  - BACK PAIN [None]
  - HIP FRACTURE [None]
  - OSTEOPOROSIS [None]
  - HEART RATE INCREASED [None]
  - HYPOXIA [None]
  - COMPRESSION FRACTURE [None]
  - ATROPHY [None]
  - VAGINAL INFECTION [None]
  - DIZZINESS [None]
  - VOMITING [None]
